FAERS Safety Report 16187465 (Version 1)
Quarter: 2019Q2

REPORT INFORMATION
  Report Type: Spontaneous
  Country: DE (occurrence: DE)
  Receive Date: 20190412
  Receipt Date: 20190412
  Transmission Date: 20190711
  Serious: Yes (Hospitalization)
  Sender: FDA-Public Use
  Company Number: DE-ALKEM LABORATORIES LIMITED-DE-ALKEM-2018-07902

PATIENT
  Age: 67 Year
  Sex: Female

DRUGS (17)
  1. PREGABALIN. [Suspect]
     Active Substance: PREGABALIN
     Dosage: 125 MG, OD
     Route: 048
     Dates: start: 20161118, end: 20161121
  2. MIRTAZAPINE. [Suspect]
     Active Substance: MIRTAZAPINE
     Indication: PRODUCT USED FOR UNKNOWN INDICATION
     Dosage: 15 MG, OD
     Route: 048
     Dates: start: 20160926
  3. QUETIAPINE FUMARATE. [Suspect]
     Active Substance: QUETIAPINE FUMARATE
     Indication: PRODUCT USED FOR UNKNOWN INDICATION
     Dosage: 75 MG, OD
     Route: 048
     Dates: start: 20161108
  4. MIRTAZAPINE. [Suspect]
     Active Substance: MIRTAZAPINE
     Dosage: 45-0 MG
     Route: 048
     Dates: start: 20161220, end: 20161226
  5. PANTOPRAZOL [Concomitant]
     Active Substance: PANTOPRAZOLE SODIUM
     Indication: PRODUCT USED FOR UNKNOWN INDICATION
     Dosage: 20 MG, OD
     Route: 048
     Dates: start: 20161116
  6. PREGABALIN. [Suspect]
     Active Substance: PREGABALIN
     Dosage: 100 MG, OD
     Route: 048
     Dates: start: 20161111, end: 20161117
  7. PREGABALIN. [Suspect]
     Active Substance: PREGABALIN
     Dosage: 125 MG, OD
     Route: 048
     Dates: start: 20161201, end: 20161204
  8. MIRTAZAPINE. [Suspect]
     Active Substance: MIRTAZAPINE
     Dosage: 30 MG, OD
     Route: 048
     Dates: start: 20170920, end: 20171019
  9. PREGABALIN. [Suspect]
     Active Substance: PREGABALIN
     Indication: PRODUCT USED FOR UNKNOWN INDICATION
     Dosage: 50 MG, OD
     Route: 048
     Dates: start: 20161110
  10. PREGABALIN. [Suspect]
     Active Substance: PREGABALIN
     Dosage: 150 MG, OD
     Route: 048
     Dates: start: 20161122, end: 20161130
  11. PREGABALIN. [Suspect]
     Active Substance: PREGABALIN
     Dosage: 100 MG, OD
     Route: 048
     Dates: start: 20161205
  12. PREGABALIN. [Suspect]
     Active Substance: PREGABALIN
     Dosage: 50 MG, OD
     Route: 048
     Dates: start: 20161206
  13. PREGABALIN. [Suspect]
     Active Substance: PREGABALIN
     Dosage: 25 MG, OD
     Route: 048
     Dates: start: 20161207
  14. MIRTAZAPINE. [Suspect]
     Active Substance: MIRTAZAPINE
     Dosage: 45 MG, OD
     Route: 048
     Dates: start: 20161020, end: 20161219
  15. PROSPAN [Concomitant]
     Active Substance: IVY EXTRACT
     Indication: PRODUCT USED FOR UNKNOWN INDICATION
     Dosage: 15 ML, OD
     Route: 048
     Dates: start: 20161117, end: 20161129
  16. AMLODIPINE [Concomitant]
     Active Substance: AMLODIPINE BESYLATE
     Indication: PRODUCT USED FOR UNKNOWN INDICATION
     Dosage: 10 MG, OD (TAKING FOR MONTHS)
     Route: 065
  17. ZIN (NEM) [Concomitant]
     Indication: PRODUCT USED FOR UNKNOWN INDICATION
     Dosage: 20 MG, OD
     Route: 048
     Dates: start: 20161116, end: 20161205

REACTIONS (1)
  - Oedema peripheral [Recovered/Resolved]

NARRATIVE: CASE EVENT DATE: 20161128
